FAERS Safety Report 10872272 (Version 1)
Quarter: 2015Q1

REPORT INFORMATION
  Report Type: Spontaneous
  Country: AU (occurrence: AU)
  Receive Date: 20150226
  Receipt Date: 20150226
  Transmission Date: 20150721
  Serious: Yes (Hospitalization)
  Sender: FDA-Public Use
  Company Number: AU-ABBVIE-14P-008-1297307-00

PATIENT
  Age: 70 Year
  Sex: Male

DRUGS (2)
  1. MADOPAR [Concomitant]
     Active Substance: BENSERAZIDE HYDROCHLORIDE\LEVODOPA
     Indication: PRODUCT USED FOR UNKNOWN INDICATION
     Route: 048
  2. DUODOPA [Suspect]
     Active Substance: CARBIDOPA\LEVODOPA
     Indication: PRODUCT USED FOR UNKNOWN INDICATION
     Route: 050

REACTIONS (10)
  - Pain [Recovered/Resolved]
  - Gastrointestinal anastomotic leak [Not Recovered/Not Resolved]
  - Device occlusion [Unknown]
  - Stoma site pain [Not Recovered/Not Resolved]
  - Device dislocation [Unknown]
  - Incorrect route of drug administration [Unknown]
  - Unintentional medical device removal [Unknown]
  - Device kink [Unknown]
  - Wound complication [Not Recovered/Not Resolved]
  - Hypertension [Unknown]

NARRATIVE: CASE EVENT DATE: 201410
